FAERS Safety Report 16737582 (Version 1)
Quarter: 2019Q3

REPORT INFORMATION
  Report Type: Spontaneous
  Country: CA (occurrence: CA)
  Receive Date: 20190823
  Receipt Date: 20190823
  Transmission Date: 20191005
  Serious: Yes (Life-Threatening, Hospitalization, Disabling, Other)
  Sender: FDA-Public Use
  Company Number: CA-PFIZER INC-2019360897

PATIENT
  Age: 60 Year
  Sex: Male
  Weight: 61 kg

DRUGS (12)
  1. COVERSYL PLUS HD [Concomitant]
     Active Substance: INDAPAMIDE\PERINDOPRIL ERBUMINE
     Dosage: UNK
  2. METFORMIN [Concomitant]
     Active Substance: METFORMIN HYDROCHLORIDE
     Dosage: UNK
  3. AMLODIPINE [Concomitant]
     Active Substance: AMLODIPINE BESYLATE
     Dosage: UNK
  4. TAMSULOSIN [Concomitant]
     Active Substance: TAMSULOSIN
     Dosage: UNK
  5. BUPIVACAINE HCL [Interacting]
     Active Substance: BUPIVACAINE HYDROCHLORIDE
     Dosage: 1.0 ML, SINGLE
     Route: 065
  6. AMITRIPTYLINE [Interacting]
     Active Substance: AMITRIPTYLINE
     Indication: ANTIDEPRESSANT THERAPY
     Dosage: 1 DF, 1X/DAY
     Route: 065
  7. ASPIRIN [ACETYLSALICYLIC ACID] [Concomitant]
     Active Substance: ASPIRIN
     Dosage: UNK
  8. GABAPENTIN. [Concomitant]
     Active Substance: GABAPENTIN
     Dosage: UNK
  9. LIPITOR [Concomitant]
     Active Substance: ATORVASTATIN CALCIUM
     Dosage: UNK
  10. TRAMADOL HYDROCHLORIDE. [Concomitant]
     Active Substance: TRAMADOL HYDROCHLORIDE
     Dosage: UNK
  11. LEVEMIR [Concomitant]
     Active Substance: INSULIN DETEMIR
     Dosage: SOLUTION SUBCUTANEOUS
  12. BUPIVACAINE HCL [Suspect]
     Active Substance: BUPIVACAINE HYDROCHLORIDE
     Indication: PAIN
     Dosage: 3.0 ML, SINGLE
     Route: 065

REACTIONS (3)
  - Cardiac arrest [Not Recovered/Not Resolved]
  - Extra dose administered [Not Recovered/Not Resolved]
  - Drug interaction [Not Recovered/Not Resolved]
